FAERS Safety Report 24055755 (Version 1)
Quarter: 2024Q3

REPORT INFORMATION
  Report Type: Spontaneous
  Country: US (occurrence: None)
  Receive Date: 20240703
  Receipt Date: 20240703
  Transmission Date: 20241017
  Serious: Yes (unspecified)
  Sender: Public
  Company Number: None

PATIENT
  Age: 60 Year
  Sex: Male

DRUGS (2)
  1. ATORVASTATIN [Suspect]
     Active Substance: ATORVASTATIN
  2. LOVASTATIN [Suspect]
     Active Substance: LOVASTATIN

REACTIONS (3)
  - Myalgia [None]
  - Asthenia [None]
  - Duplicate therapy error [None]

NARRATIVE: CASE EVENT DATE: 20240523
